FAERS Safety Report 6091974-4 (Version None)
Quarter: 2009Q1

REPORT INFORMATION
  Report Type: 
  Country: None (occurrence: None)
  Receive Date: 20090225
  Receipt Date: 20081205
  Transmission Date: 20090719
  Serious: No
  Sender: FDA-Public Use
  Company Number: A0756231A

PATIENT
  Age: 10 Year
  Sex: Female

DRUGS (7)
  1. VALTREX [Suspect]
     Indication: AUTISM
     Dosage: 250MG THREE TIMES PER DAY
     Route: 048
     Dates: start: 20000201
  2. NIZORAL [Concomitant]
  3. SSRI [Concomitant]
  4. FLONASE [Concomitant]
  5. ZYRTEC [Concomitant]
  6. SINGULAIR [Concomitant]
  7. NYSTATIN [Concomitant]

REACTIONS (2)
  - PSYCHOMOTOR HYPERACTIVITY [None]
  - THERAPEUTIC RESPONSE UNEXPECTED [None]
